FAERS Safety Report 6175486-5 (Version None)
Quarter: 2009Q2

REPORT INFORMATION
  Report Type: 
  Country: None (occurrence: None)
  Receive Date: 20090430
  Receipt Date: 20090420
  Transmission Date: 20091009
  Serious: Yes (Death)
  Sender: FDA-Public Use
  Company Number: GXKR2009GB04856

PATIENT
  Age: 168 Month

DRUGS (9)
  1. CYCLOSPORINE [Suspect]
     Indication: BONE MARROW TRANSPLANT
  2. CYCLOSPORINE [Suspect]
     Indication: PROPHYLAXIS AGAINST GRAFT VERSUS HOST DISEASE
  3. METHOTREXATE [Suspect]
     Indication: BONE MARROW TRANSPLANT
  4. METHOTREXATE [Suspect]
     Indication: PROPHYLAXIS AGAINST GRAFT VERSUS HOST DISEASE
  5. CYCLOPHOSPHAMIDE [Suspect]
     Indication: BONE MARROW CONDITIONING REGIMEN
  6. CYCLOPHOSPHAMIDE [Suspect]
     Indication: BONE MARROW TRANSPLANT
  7. BUSULPHAN (BUSULFAN) [Suspect]
     Indication: BONE MARROW CONDITIONING REGIMEN
  8. BUSULPHAN (BUSULFAN) [Suspect]
     Indication: BONE MARROW TRANSPLANT
  9. IMMUNE GLOBULIN (HUMAN) [Suspect]
     Indication: BONE MARROW TRANSPLANT

REACTIONS (1)
  - INFECTION [None]
